FAERS Safety Report 9379609 (Version 1)
Quarter: 2013Q3

REPORT INFORMATION
  Report Type: Report from Study
  Country: KR (occurrence: KR)
  Receive Date: 20130702
  Receipt Date: 20130702
  Transmission Date: 20140515
  Serious: Yes (Hospitalization, Other)
  Sender: FDA-Public Use
  Company Number: PHHY2013KR066409

PATIENT
  Age: 43 Year
  Sex: Female
  Weight: 45.2 kg

DRUGS (6)
  1. EVEROLIMUS [Suspect]
     Dosage: 1.5 MG, UNK
     Route: 048
     Dates: start: 20111128
  2. SANDIMMUN NEORAL [Suspect]
     Indication: IMMUNOSUPPRESSION
     Dosage: 50 MG, UNK
     Dates: start: 20101103
  3. SOLONDO [Suspect]
     Indication: IMMUNOSUPPRESSION
     Dosage: 10 MG, UNK
     Dates: start: 20101107
  4. NORVASC [Concomitant]
     Indication: HYPERTENSION
     Dosage: 5 MG, UNK
     Dates: start: 20101129
  5. LIPITOR [Concomitant]
     Indication: HYPERLIPIDAEMIA
     Dosage: 10 MG, UNK
     Dates: start: 20110504
  6. PROVERA [Concomitant]
     Indication: ENDOMETRIAL HYPERPLASIA
     Dosage: 20 MG, UNK
     Dates: start: 20130218, end: 20130318

REACTIONS (5)
  - Infectious colitis [Recovered/Resolved]
  - Vomiting [Recovered/Resolved]
  - Diarrhoea [Recovered/Resolved]
  - Uterine polyp [Not Recovered/Not Resolved]
  - Endometrial hyperplasia [Not Recovered/Not Resolved]
